FAERS Safety Report 10415423 (Version 1)
Quarter: 2014Q3

REPORT INFORMATION
  Report Type: Spontaneous
  Country: CA (occurrence: None)
  Receive Date: 20140826
  Receipt Date: 20140826
  Transmission Date: 20150326
  Serious: Yes (Hospitalization, Other)
  Sender: FDA-Public Use
  Company Number: ADR-2014-01497

PATIENT
  Sex: Male

DRUGS (2)
  1. XYLOCAINE [Suspect]
     Active Substance: LIDOCAINE HYDROCHLORIDE
  2. LIORESAL [Suspect]
     Active Substance: BACLOFEN

REACTIONS (9)
  - Therapy cessation [None]
  - Accidental overdose [None]
  - Condition aggravated [None]
  - Underdose [None]
  - Wrong drug administered [None]
  - Convulsion [None]
  - Muscle spasticity [None]
  - Drug withdrawal syndrome [None]
  - Therapy change [None]

NARRATIVE: CASE EVENT DATE: 20140814
